FAERS Safety Report 8114785-4 (Version None)
Quarter: 2012Q1

REPORT INFORMATION
  Report Type: 
  Country: None (occurrence: None)
  Receive Date: 20120206
  Receipt Date: 20120124
  Transmission Date: 20120608
  Serious: Yes (Hospitalization)
  Sender: FDA-Public Use
  Company Number: US-ELI_LILLY_AND_COMPANY-US201111005017

PATIENT
  Sex: Female

DRUGS (12)
  1. CITRACAL                           /00751520/ [Concomitant]
  2. ASPIRIN [Concomitant]
     Dosage: 325 MG, UNK
  3. CARDIZEM [Concomitant]
     Dosage: 90 MG, UNK
  4. DAILY VITAMINS [Concomitant]
  5. LUMIGAN [Concomitant]
  6. FORTEO [Suspect]
     Indication: OSTEOPOROSIS
     Dosage: 20 UG, QD
  7. FISH OIL [Concomitant]
     Dosage: 1000 IU, UNK
  8. FORTEO [Suspect]
     Dosage: 20 UG, QD
  9. AMLODIPINE [Concomitant]
  10. CITRACAL PLUS [Concomitant]
  11. VITAMIN D [Concomitant]
     Dosage: 1000 IU, UNK
  12. GLYCOLAX [Concomitant]

REACTIONS (2)
  - JOINT DISLOCATION [None]
  - DEVICE DISLOCATION [None]
